APPROVED DRUG PRODUCT: RISEDRONATE SODIUM
Active Ingredient: RISEDRONATE SODIUM
Strength: 35MG
Dosage Form/Route: TABLET, DELAYED RELEASE;ORAL
Application: A203822 | Product #001
Applicant: ZYDUS PHARMACEUTICALS USA INC
Approved: Sep 11, 2018 | RLD: No | RS: No | Type: DISCN